FAERS Safety Report 17983300 (Version 1)
Quarter: 2020Q3

REPORT INFORMATION
  Report Type: Spontaneous
  Country: US (occurrence: US)
  Receive Date: 20200703
  Receipt Date: 20200703
  Transmission Date: 20201103
  Serious: No
  Sender: FDA-Public Use
  Company Number: None

PATIENT
  Sex: Male

DRUGS (1)
  1. IBRANCE [Suspect]
     Active Substance: PALBOCICLIB
     Indication: BENIGN SOFT TISSUE NEOPLASM
     Route: 048
     Dates: start: 20200316

REACTIONS (1)
  - Blood alkaline phosphatase increased [None]
